FAERS Safety Report 4314960-0 (Version None)
Quarter: 2004Q1

REPORT INFORMATION
  Report Type: 
  Country: None (occurrence: None)
  Receive Date: 20040309
  Receipt Date: 20040225
  Transmission Date: 20041129
  Serious: Yes (Death)
  Sender: FDA-Public Use
  Company Number: GBS040214513

PATIENT
  Age: 61 Year
  Sex: Female

DRUGS (5)
  1. ZYPREXA [Suspect]
     Indication: BIPOLAR DISORDER
     Dosage: 10 MG/2 DAY
     Dates: start: 19980501
  2. LITHIUM CARBONATE [Concomitant]
  3. HALOPERIDOL [Concomitant]
  4. PROCYCLIDINE [Concomitant]
  5. CLONAZEPAM [Concomitant]

REACTIONS (4)
  - RENAL IMPAIRMENT [None]
  - SUDDEN DEATH [None]
  - THERAPEUTIC AGENT TOXICITY [None]
  - URINARY TRACT INFECTION [None]
